FAERS Safety Report 8808495 (Version 1)
Quarter: 2012Q4

REPORT INFORMATION
  Report Type: Spontaneous
  Country: US (occurrence: None)
  Receive Date: 20120920
  Receipt Date: 20120920
  Transmission Date: 20130627
  Serious: Yes (Hospitalization)
  Sender: FDA-Public Use
  Company Number: None

PATIENT
  Sex: Female
  Weight: 53.52 kg

DRUGS (1)
  1. VENOFER [Suspect]
     Route: 042
     Dates: start: 20120803, end: 20120804

REACTIONS (2)
  - Compartment syndrome [None]
  - Injection site extravasation [None]
